FAERS Safety Report 8444122-7 (Version None)
Quarter: 2012Q2

REPORT INFORMATION
  Report Type: 
  Country: None (occurrence: None)
  Receive Date: 20120618
  Receipt Date: 20120606
  Transmission Date: 20120825
  Serious: Yes (Death, Life-Threatening, Hospitalization)
  Sender: FDA-Public Use
  Company Number: IT-BRISTOL-MYERS SQUIBB COMPANY-16665861

PATIENT
  Age: 65 Year
  Sex: Male
  Weight: 58 kg

DRUGS (3)
  1. CETUXIMAB [Suspect]
     Indication: NON-SMALL CELL LUNG CANCER
     Dosage: STRENTH:5MG/ML,NO OF INF:5
     Route: 042
     Dates: start: 20120416, end: 20120521
  2. GEMCITABINE [Suspect]
     Indication: NON-SMALL CELL LUNG CANCER
     Dosage: DAY 1 AND DAY 8 OF EACH 3 WEEK CYCLE,NO OF INF:4
     Route: 042
     Dates: start: 20110416, end: 20110521
  3. CISPLATIN [Suspect]
     Indication: NON-SMALL CELL LUNG CANCER
     Dosage: NO OF INF:2
     Route: 042
     Dates: start: 20120416, end: 20120514

REACTIONS (3)
  - SHOCK [None]
  - FATIGUE [None]
  - HYPOTENSION [None]
